FAERS Safety Report 19964002 (Version 1)
Quarter: 2021Q4

REPORT INFORMATION
  Report Type: Spontaneous
  Country: US (occurrence: US)
  Receive Date: 20211018
  Receipt Date: 20211018
  Transmission Date: 20220303
  Serious: Yes (Death)
  Sender: FDA-Public Use
  Company Number: None

PATIENT
  Age: 70 Year
  Sex: Female
  Weight: 105 kg

DRUGS (1)
  1. TOCILIZUMAB [Suspect]
     Active Substance: TOCILIZUMAB
     Indication: COVID-19
     Route: 042
     Dates: start: 20211003, end: 20211004

REACTIONS (9)
  - Dyspnoea [None]
  - COVID-19 [None]
  - Respiratory distress [None]
  - Hypoxia [None]
  - Tachycardia [None]
  - Atelectasis [None]
  - Drug ineffective [None]
  - Blood culture positive [None]
  - Staphylococcal infection [None]

NARRATIVE: CASE EVENT DATE: 20211007
